FAERS Safety Report 9932425 (Version 1)
Quarter: 2014Q1

REPORT INFORMATION
  Report Type: Spontaneous
  Country: US (occurrence: US)
  Receive Date: 20140228
  Receipt Date: 20140228
  Transmission Date: 20141002
  Serious: No
  Sender: FDA-Public Use
  Company Number: US-GLAXOSMITHKLINE-A1013548A

PATIENT
  Age: 22 Year
  Sex: Male

DRUGS (2)
  1. LAMICTAL [Suspect]
     Indication: CONVULSION
     Dosage: 150MG TWICE PER DAY
     Route: 065
     Dates: start: 2008
  2. ZYRTEC [Concomitant]

REACTIONS (2)
  - Rash [Not Recovered/Not Resolved]
  - Skin exfoliation [Unknown]
